FAERS Safety Report 7646321-0 (Version None)
Quarter: 2011Q3

REPORT INFORMATION
  Report Type: 
  Country: None (occurrence: None)
  Receive Date: 20110725
  Receipt Date: 20110709
  Transmission Date: 20111222
  Serious: Yes (Other)
  Sender: FDA-Public Use
  Company Number: AUR-APL-2011-04375

PATIENT
  Age: 61 Year
  Sex: Male
  Weight: 90.25 kg

DRUGS (8)
  1. VENLAFAXINE [Suspect]
     Indication: PRODUCT USED FOR UNKNOWN INDICATION
     Dosage: (37.5 MG), (150 MG, 1 D), DOSE WAS TAPERED
     Dates: start: 20110628, end: 20110701
  2. VENLAFAXINE [Suspect]
     Indication: PRODUCT USED FOR UNKNOWN INDICATION
     Dosage: (37.5 MG), (150 MG, 1 D), DOSE WAS TAPERED
     Dates: start: 20110525, end: 20110602
  3. VENLAFAXINE [Suspect]
     Indication: PRODUCT USED FOR UNKNOWN INDICATION
     Dosage: (37.5 MG), (150 MG, 1 D), DOSE WAS TAPERED
     Dates: start: 20110603, end: 20110627
  4. TRICOR (ADENOSINE) [Concomitant]
  5. COZAAR [Concomitant]
  6. COZAAR [Concomitant]
  7. LIPITOR [Concomitant]
  8. DETROL [Concomitant]

REACTIONS (2)
  - PSYCHOTIC DISORDER [None]
  - AGITATION [None]
